FAERS Safety Report 7694430-2 (Version None)
Quarter: 2011Q3

REPORT INFORMATION
  Report Type: 
  Country: None (occurrence: None)
  Receive Date: 20110819
  Receipt Date: 20110816
  Transmission Date: 20111222
  Serious: Yes (Other)
  Sender: FDA-Public Use
  Company Number: GB-PFIZER INC-2011136613

PATIENT
  Age: 61 Year
  Sex: Female

DRUGS (11)
  1. AMITRIPTYLINE HCL [Suspect]
     Dosage: 10 MG, UNK
  2. LANSOPRAZOLE [Concomitant]
     Dosage: 30 MG, 1X/DAY
  3. OXYBUTYNIN [Concomitant]
     Dosage: 3 MG, 2X/DAY
  4. ACETAMINOPHEN [Suspect]
     Dosage: 8 DF, DAILY
  5. TRAMADOL HCL [Suspect]
     Dosage: 8 DF, UNK
  6. CITALOPRAM [Concomitant]
     Dosage: 10 MG TWICE DAILY
  7. DICLOFENAC [Concomitant]
  8. MISOPROSTOL [Suspect]
     Dosage: 500 MG, 2X/DAY
  9. VENTOLIN HFA [Concomitant]
     Dosage: UNK
  10. SERETIDE [Concomitant]
  11. NAPROXEN [Suspect]
     Dosage: 500 MG, 2X/DAY

REACTIONS (7)
  - MUSCULOSKELETAL STIFFNESS [None]
  - RHEUMATOID ARTHRITIS [None]
  - ASTHMA [None]
  - OSTEOARTHRITIS [None]
  - SWELLING [None]
  - IDIOPATHIC THROMBOCYTOPENIC PURPURA [None]
  - PAIN [None]
